FAERS Safety Report 13681466 (Version 1)
Quarter: 2017Q2

REPORT INFORMATION
  Report Type: Spontaneous
  Country: US (occurrence: US)
  Receive Date: 20170622
  Receipt Date: 20170622
  Transmission Date: 20170830
  Serious: Yes (Other)
  Sender: FDA-Public Use
  Company Number: None

PATIENT
  Age: 35 Year
  Sex: Female
  Weight: 56.25 kg

DRUGS (1)
  1. BUPRENORPHINE/NALOXONE [Suspect]
     Active Substance: BUPRENORPHINE\NALOXONE
     Indication: DRUG USE DISORDER
     Route: 060
     Dates: start: 20170523, end: 20170620

REACTIONS (13)
  - Headache [None]
  - Decreased activity [None]
  - Insomnia [None]
  - Withdrawal syndrome [None]
  - Depressed mood [None]
  - Pain [None]
  - Restless legs syndrome [None]
  - Homicidal ideation [None]
  - Disturbance in attention [None]
  - Paraesthesia [None]
  - Anxiety [None]
  - Self-injurious ideation [None]
  - Visual impairment [None]

NARRATIVE: CASE EVENT DATE: 20170523
